FAERS Safety Report 5834994-4 (Version None)
Quarter: 2008Q3

REPORT INFORMATION
  Report Type: 
  Country: None (occurrence: None)
  Receive Date: 20080806
  Receipt Date: 20080729
  Transmission Date: 20090109
  Serious: Yes (Other)
  Sender: FDA-Public Use
  Company Number: FR-AMGEN-US294047

PATIENT
  Sex: Male
  Weight: 105 kg

DRUGS (1)
  1. ENBREL [Suspect]
     Indication: PSORIASIS
     Dosage: 50 MG STRENGTH; FREQUENCY UNSPECIFIED
     Route: 058
     Dates: start: 20070402

REACTIONS (2)
  - AORTIC DILATATION [None]
  - DYSPNOEA [None]
